FAERS Safety Report 17395264 (Version 1)
Quarter: 2020Q1

REPORT INFORMATION
  Report Type: Spontaneous
  Country: DE (occurrence: DE)
  Receive Date: 20200210
  Receipt Date: 20200210
  Transmission Date: 20200409
  Serious: Yes (Other)
  Sender: FDA-Public Use
  Company Number: DE-BRISTOL-MYERS SQUIBB COMPANY-BMS-2020-009645

PATIENT
  Age: 49 Year
  Sex: Male
  Weight: 127 kg

DRUGS (2)
  1. ELIQUIS [Suspect]
     Active Substance: APIXABAN
     Indication: AORTIC ANASTOMOSIS
     Dosage: 5 MILLIGRAM
     Route: 048
     Dates: end: 20191119
  2. ELIQUIS [Suspect]
     Active Substance: APIXABAN
     Indication: HEART VALVE REPLACEMENT
     Dosage: 2.5 MILLIGRAM
     Route: 048
     Dates: start: 20190619

REACTIONS (5)
  - Strabismus [Recovered/Resolved]
  - Intentional product use issue [Unknown]
  - Visual field defect [Recovered/Resolved]
  - Vision blurred [Recovered/Resolved]
  - Circulatory collapse [Recovered/Resolved]

NARRATIVE: CASE EVENT DATE: 20190624
